FAERS Safety Report 25448441 (Version 2)
Quarter: 2025Q3

REPORT INFORMATION
  Report Type: Spontaneous
  Country: EU (occurrence: EU)
  Receive Date: 20250618
  Receipt Date: 20250724
  Transmission Date: 20251021
  Serious: No
  Sender: VIIV
  Company Number: EU-VIIV HEALTHCARE-DE2025EME074115

PATIENT
  Sex: Female
  Weight: 76 kg

DRUGS (2)
  1. VOCABRIA [Suspect]
     Active Substance: CABOTEGRAVIR SODIUM
     Indication: Product used for unknown indication
  2. RILPIVIRINE [Suspect]
     Active Substance: RILPIVIRINE
     Indication: Product used for unknown indication

REACTIONS (1)
  - No adverse event [Unknown]
